FAERS Safety Report 8471015-1 (Version None)
Quarter: 2012Q2

REPORT INFORMATION
  Report Type: 
  Country: None (occurrence: None)
  Receive Date: 20120627
  Receipt Date: 20120613
  Transmission Date: 20120825
  Serious: Yes (Other)
  Sender: FDA-Public Use
  Company Number: JP-ELI_LILLY_AND_COMPANY-JP201205007179

PATIENT
  Age: 35 Year
  Sex: Male

DRUGS (5)
  1. ZYPREXA [Suspect]
     Indication: DELIRIUM
     Dosage: 5 MG, QD
     Route: 048
     Dates: start: 20120516, end: 20120524
  2. ROHYPNOL [Concomitant]
     Indication: INSOMNIA
     Dosage: UNK
     Route: 048
     Dates: start: 20120326
  3. ZYPREXA [Suspect]
     Dosage: 10 MG, QD
     Route: 048
     Dates: start: 20120525
  4. RISPERDAL [Concomitant]
     Dosage: UNK
     Route: 048
     Dates: end: 20120515
  5. RISPERDAL [Concomitant]
     Indication: DELIRIUM
     Dosage: UNK
     Route: 048

REACTIONS (5)
  - APATHY [None]
  - MASKED FACIES [None]
  - SURGERY [None]
  - OFF LABEL USE [None]
  - RESTLESSNESS [None]
